FAERS Safety Report 9298963 (Version 1)
Quarter: 2013Q2

REPORT INFORMATION
  Report Type: Spontaneous
  Country: IT (occurrence: IT)
  Receive Date: 20130520
  Receipt Date: 20130520
  Transmission Date: 20140414
  Serious: Yes (Hospitalization)
  Sender: FDA-Public Use
  Company Number: IT-TEVA-404119ISR

PATIENT
  Age: 38 Year
  Sex: Female

DRUGS (2)
  1. CARBOPLATIN [Suspect]
     Indication: OVARIAN CANCER
     Route: 042
     Dates: start: 20130222, end: 20130315
  2. GEMZAR [Concomitant]

REACTIONS (3)
  - Rash [Recovered/Resolved]
  - Bronchostenosis [Recovered/Resolved]
  - Chills [Recovered/Resolved]
